FAERS Safety Report 12845487 (Version 1)
Quarter: 2016Q4

REPORT INFORMATION
  Report Type: Spontaneous
  Country: US (occurrence: US)
  Receive Date: 20161013
  Receipt Date: 20161013
  Transmission Date: 20170207
  Serious: No
  Sender: FDA-Public Use
  Company Number: US-JAZZ-2016-US-013833

PATIENT
  Age: 41 Year
  Sex: Female
  Weight: 50.79 kg

DRUGS (32)
  1. VITAMIN B12 [Concomitant]
     Active Substance: CYANOCOBALAMIN
     Indication: SUPPLEMENTATION THERAPY
  2. FOLIC ACID. [Concomitant]
     Active Substance: FOLIC ACID
     Indication: SUPPLEMENTATION THERAPY
  3. VITAMIN D3 [Concomitant]
     Active Substance: CHOLECALCIFEROL
  4. SODIUM CHLORIDE. [Concomitant]
     Active Substance: SODIUM CHLORIDE
  5. OXYCONTIN [Concomitant]
     Active Substance: OXYCODONE HYDROCHLORIDE
  6. VITAMIN D [Concomitant]
     Active Substance: CHOLECALCIFEROL
     Indication: SUPPLEMENTATION THERAPY
  7. XANAX [Concomitant]
     Active Substance: ALPRAZOLAM
  8. CYMBALTA [Concomitant]
     Active Substance: DULOXETINE HYDROCHLORIDE
  9. LYRICA [Concomitant]
     Active Substance: PREGABALIN
  10. HALOPERIDOL. [Concomitant]
     Active Substance: HALOPERIDOL
  11. XYREM [Suspect]
     Active Substance: SODIUM OXYBATE
     Dosage: DOSE ADJUSTMENTS
     Route: 048
     Dates: start: 2016, end: 2016
  12. XYREM [Suspect]
     Active Substance: SODIUM OXYBATE
     Dosage: 3 G, BID
     Route: 048
     Dates: start: 2016
  13. SYNTHROID [Concomitant]
     Active Substance: LEVOTHYROXINE SODIUM
     Indication: HYPOTHYROIDISM
  14. CYANOCOBALAMIN. [Concomitant]
     Active Substance: CYANOCOBALAMIN
  15. FLUORODEOXYGLUCOSE F 18 [Concomitant]
     Active Substance: FLUDEOXYGLUCOSE F-18
  16. LEVOTHYROXINE SODIUM. [Concomitant]
     Active Substance: LEVOTHYROXINE SODIUM
  17. FENTANYL. [Concomitant]
     Active Substance: FENTANYL
  18. SOMA [Concomitant]
     Active Substance: CARISOPRODOL
  19. MELATONIN [Concomitant]
     Active Substance: MELATONIN
  20. OXYCODONE [Concomitant]
     Active Substance: OXYCODONE
  21. TEMAZEPAM. [Concomitant]
     Active Substance: TEMAZEPAM
  22. BIOTIN [Concomitant]
     Active Substance: BIOTIN
  23. XYREM [Suspect]
     Active Substance: SODIUM OXYBATE
     Indication: NARCOLEPSY
     Dosage: 2.25 G, BID
     Route: 048
     Dates: start: 201605, end: 2016
  24. SEROQUEL [Concomitant]
     Active Substance: QUETIAPINE FUMARATE
  25. BENZTROPINE MESILATE [Concomitant]
     Active Substance: BENZTROPINE MESYLATE
  26. MULTIVITAMINS [Concomitant]
     Active Substance: VITAMINS
  27. REMERON [Concomitant]
     Active Substance: MIRTAZAPINE
  28. SONATA [Concomitant]
     Active Substance: ZALEPLON
  29. AMANTADINE [Concomitant]
     Active Substance: AMANTADINE
  30. CORTEF [Concomitant]
     Active Substance: HYDROCORTISONE
  31. LIDOCAINE. [Concomitant]
     Active Substance: LIDOCAINE
  32. TOPAMAX [Concomitant]
     Active Substance: TOPIRAMATE

REACTIONS (1)
  - Nightmare [Unknown]

NARRATIVE: CASE EVENT DATE: 201607
